FAERS Safety Report 6317617-X (Version None)
Quarter: 2009Q3

REPORT INFORMATION
  Report Type: 
  Country: None (occurrence: None)
  Receive Date: 20090821
  Receipt Date: 20090819
  Transmission Date: 20100115
  Serious: Yes (Other)
  Sender: FDA-Public Use
  Company Number: DE-BRISTOL-MYERS SQUIBB COMPANY-14672984

PATIENT
  Age: 45 Year
  Sex: Male
  Weight: 80 kg

DRUGS (1)
  1. BARACLUDE [Suspect]
     Indication: HEPATITIS B
     Route: 048
     Dates: start: 20080313

REACTIONS (3)
  - BLOOD CREATINE PHOSPHOKINASE INCREASED [None]
  - DEPRESSED MOOD [None]
  - MYALGIA [None]
